FAERS Safety Report 9785466 (Version 2)
Quarter: 2014Q2

REPORT INFORMATION
  Report Type: Spontaneous
  Country: AU (occurrence: None)
  Receive Date: 20131223
  Receipt Date: 20140612
  Transmission Date: 20141212
  Serious: Yes (Hospitalization)
  Sender: FDA-Public Use
  Company Number: AUR-APL-2013-10527

PATIENT
  Age: 48 Year
  Sex: Female

DRUGS (3)
  1. MIRTAZEPINE TEVA [Suspect]
     Indication: MAJOR DEPRESSION
  2. MIRTAZEPINE TEVA [Suspect]
     Indication: SUICIDAL IDEATION
  3. VENLAFAXINE (VENLAFAXINE) [Suspect]
     Indication: MAJOR DEPRESSION

REACTIONS (4)
  - Oedema peripheral [None]
  - Photosensitivity reaction [None]
  - Drug interaction [None]
  - Tenderness [None]
